FAERS Safety Report 12091447 (Version 1)
Quarter: 2016Q1

REPORT INFORMATION
  Report Type: Spontaneous
  Country: IT (occurrence: IT)
  Receive Date: 20160218
  Receipt Date: 20160218
  Transmission Date: 20160526
  Serious: Yes (Death, Other)
  Sender: FDA-Public Use
  Company Number: PHHY2016IT021053

PATIENT
  Age: 8 Year
  Sex: Female

DRUGS (2)
  1. CICLOSPORIN [Suspect]
     Active Substance: CYCLOSPORINE
     Indication: PROPHYLAXIS AGAINST GRAFT VERSUS HOST DISEASE
  2. CICLOSPORIN [Suspect]
     Active Substance: CYCLOSPORINE
     Indication: STEM CELL TRANSPLANT
     Dosage: 3 MG/KG, QD
     Route: 065

REACTIONS (12)
  - Posterior reversible encephalopathy syndrome [Recovering/Resolving]
  - Pneumonia influenzal [Fatal]
  - Hemiparesis [Recovering/Resolving]
  - Metabolic acidosis [Recovered/Resolved]
  - H1N1 influenza [Fatal]
  - Seizure [Recovering/Resolving]
  - Hypocalcaemia [Recovered/Resolved]
  - Acute graft versus host disease [Unknown]
  - Brain oedema [Recovering/Resolving]
  - Hypertension [Recovering/Resolving]
  - Chronic graft versus host disease [Fatal]
  - Hypomagnesaemia [Recovered/Resolved]
